FAERS Safety Report 15147336 (Version 1)
Quarter: 2018Q3

REPORT INFORMATION
  Report Type: Spontaneous
  Country: FR (occurrence: FR)
  Receive Date: 20180716
  Receipt Date: 20180716
  Transmission Date: 20181010
  Serious: Yes (Other)
  Sender: FDA-Public Use
  Company Number: FR-TEVA-2018-FR-926038

PATIENT
  Age: 8 Year
  Sex: Male
  Weight: 21 kg

DRUGS (3)
  1. VINCRISTINE TEVA [Suspect]
     Active Substance: VINCRISTINE
     Indication: ACUTE LYMPHOCYTIC LEUKAEMIA
     Dosage: 1.15 MILLIGRAM
     Route: 042
     Dates: start: 20170710
  2. XALUPRINE 20 MG/ML, SUSPENSION ORALE [Suspect]
     Active Substance: MERCAPTOPURINE
     Indication: ACUTE LYMPHOCYTIC LEUKAEMIA
     Dosage: 24 MILLIGRAM DAILY;
     Route: 048
     Dates: start: 20170515
  3. METHOTREXATE. [Suspect]
     Active Substance: METHOTREXATE
     Indication: ACUTE LYMPHOCYTIC LEUKAEMIA
     Dosage: 7.5 MILLIGRAM
     Route: 048
     Dates: start: 20170515

REACTIONS (1)
  - Hepatocellular injury [Unknown]

NARRATIVE: CASE EVENT DATE: 20180413
